FAERS Safety Report 16055902 (Version 2)
Quarter: 2019Q3

REPORT INFORMATION
  Report Type: Report from Study
  Country: CA (occurrence: CA)
  Receive Date: 20190311
  Receipt Date: 20190819
  Transmission Date: 20191004
  Serious: Yes (Other)
  Sender: FDA-Public Use
  Company Number: CA-BRISTOL-MYERS SQUIBB COMPANY-BMS-2018-037741

PATIENT
  Age: 77 Year
  Sex: Female

DRUGS (1)
  1. ABATACEPT [Suspect]
     Active Substance: ABATACEPT
     Indication: RHEUMATOID ARTHRITIS
     Dosage: 125 MG, QWK
     Route: 058
     Dates: start: 20180227

REACTIONS (11)
  - Stress [Unknown]
  - Pain in extremity [Not Recovered/Not Resolved]
  - Ear pain [Unknown]
  - Fatigue [Not Recovered/Not Resolved]
  - Middle ear effusion [Unknown]
  - Joint swelling [Not Recovered/Not Resolved]
  - Nasopharyngitis [Unknown]
  - Rhinorrhoea [Unknown]
  - Ear disorder [Unknown]
  - Glossitis [Recovered/Resolved]
  - Insomnia [Not Recovered/Not Resolved]

NARRATIVE: CASE EVENT DATE: 2018
